FAERS Safety Report 14710361 (Version 1)
Quarter: 2018Q2

REPORT INFORMATION
  Report Type: Spontaneous
  Country: US (occurrence: US)
  Receive Date: 20180403
  Receipt Date: 20180403
  Transmission Date: 20180711
  Serious: No
  Sender: FDA-Public Use
  Company Number: US-ROCHE-1958803

PATIENT
  Sex: Female

DRUGS (16)
  1. CLONIDINE HCL [Concomitant]
     Active Substance: CLONIDINE HYDROCHLORIDE
  2. BAZA PROTECT [Concomitant]
     Active Substance: DIMETHICONE\ZINC OXIDE
  3. ERIVEDGE [Suspect]
     Active Substance: VISMODEGIB
     Indication: BASAL CELL CARCINOMA
     Route: 048
     Dates: start: 20170620
  4. BISACODYL. [Concomitant]
     Active Substance: BISACODYL
  5. NORVASC [Concomitant]
     Active Substance: AMLODIPINE BESYLATE
  6. LISINOPRIL. [Concomitant]
     Active Substance: LISINOPRIL
  7. METOPROLOL TARTRATE. [Concomitant]
     Active Substance: METOPROLOL TARTRATE
  8. ATORVASTATIN CALCIUM. [Concomitant]
     Active Substance: ATORVASTATIN CALCIUM
  9. BISCOLAX [Concomitant]
     Active Substance: BISACODYL
  10. LEXAPRO [Concomitant]
     Active Substance: ESCITALOPRAM OXALATE
  11. MAG-OX [Concomitant]
     Active Substance: MAGNESIUM OXIDE
     Dosage: 400
     Route: 065
  12. RISPERDAL [Concomitant]
     Active Substance: RISPERIDONE
  13. TYLENOL [Concomitant]
     Active Substance: ACETAMINOPHEN
  14. DOCUSATE SODIUM. [Concomitant]
     Active Substance: DOCUSATE SODIUM
  15. FOLIC ACID. [Concomitant]
     Active Substance: FOLIC ACID
  16. LORAZEPAM. [Concomitant]
     Active Substance: LORAZEPAM

REACTIONS (2)
  - Skin disorder [Unknown]
  - Skin haemorrhage [Unknown]
